FAERS Safety Report 20611461 (Version 1)
Quarter: 2022Q1

REPORT INFORMATION
  Report Type: Spontaneous
  Country: AU (occurrence: AU)
  Receive Date: 20220318
  Receipt Date: 20220318
  Transmission Date: 20220423
  Serious: Yes (Hospitalization)
  Sender: FDA-Public Use
  Company Number: AU-009507513-2203AUS004166

PATIENT
  Age: 39 Year
  Sex: Male

DRUGS (1)
  1. IVERMECTIN [Suspect]
     Active Substance: IVERMECTIN
     Dosage: 6X3MG TABLETS DAILY
     Dates: start: 20210906, end: 20210913

REACTIONS (5)
  - Dyspnoea [Recovering/Resolving]
  - Cough [Recovering/Resolving]
  - Liver function test abnormal [Recovering/Resolving]
  - Vomiting [Recovering/Resolving]
  - Decreased appetite [Recovering/Resolving]

NARRATIVE: CASE EVENT DATE: 20210906
